FAERS Safety Report 23840534 (Version 1)
Quarter: 2024Q2

REPORT INFORMATION
  Report Type: Spontaneous
  Country: CN (occurrence: CN)
  Receive Date: 20240510
  Receipt Date: 20240510
  Transmission Date: 20240716
  Serious: Yes (Other)
  Sender: FDA-Public Use
  Company Number: CN-BEH-2024171983

PATIENT
  Age: 64 Year
  Sex: Female
  Weight: 49 kg

DRUGS (1)
  1. ALBURX [Suspect]
     Active Substance: ALBUMIN HUMAN
     Indication: Hypoproteinaemia
     Dosage: 100 ML, OD
     Route: 041
     Dates: start: 20240329, end: 20240331

REACTIONS (3)
  - Hyperpyrexia [Recovering/Resolving]
  - Blood test abnormal [Unknown]
  - C-reactive protein increased [Unknown]

NARRATIVE: CASE EVENT DATE: 20240301
